FAERS Safety Report 4455055-5 (Version None)
Quarter: 2004Q3

REPORT INFORMATION
  Report Type: 
  Country: None (occurrence: None)
  Receive Date: 20040917
  Receipt Date: 20040827
  Transmission Date: 20050211
  Serious: Yes (Hospitalization, Other)
  Sender: FDA-Public Use
  Company Number: USA040259353

PATIENT
  Age: 85 Year
  Sex: Female
  Weight: 49 kg

DRUGS (2)
  1. FORTEO [Suspect]
     Indication: OSTEOPOROSIS
     Dosage: 20 UG DAY
     Dates: start: 20030401, end: 20030908
  2. MIACALCIN [Concomitant]

REACTIONS (6)
  - BODY HEIGHT DECREASED [None]
  - LOWER LIMB FRACTURE [None]
  - MEMORY IMPAIRMENT [None]
  - PHARMACEUTICAL PRODUCT COMPLAINT [None]
  - RIB FRACTURE [None]
  - STRESS FRACTURE [None]
